FAERS Safety Report 7316064-1 (Version None)
Quarter: 2011Q1

REPORT INFORMATION
  Report Type: 
  Country: None (occurrence: None)
  Receive Date: 20110225
  Receipt Date: 20110216
  Transmission Date: 20110831
  Serious: Yes (Other)
  Sender: FDA-Public Use
  Company Number: US-PFIZER INC-2011036240

PATIENT
  Age: 26 Year
  Sex: Male

DRUGS (18)
  1. RITONAVIR [Concomitant]
     Indication: HIV INFECTION
     Dosage: BLINED
     Route: 048
  2. CLOBETASOL [Concomitant]
     Dosage: UNK
  3. METHYLPREDNISOLONE [Concomitant]
     Dosage: UNK
  4. MOMETASONE [Concomitant]
  5. DIPHENHYDRAMINE [Concomitant]
     Dosage: UNK
  6. TUSNEL [Suspect]
     Indication: COUGH
  7. ATAZANAVIR [Concomitant]
     Dosage: 300 MG, 1X/DAY
     Route: 048
     Dates: start: 20101020
  8. TRUVADA [Suspect]
     Dosage: 200 MG, 1X/DAY
     Route: 048
     Dates: start: 20101008
  9. ATAZANAVIR [Concomitant]
     Indication: HIV INFECTION
     Dosage: 300 MG, 1X/DAY
     Route: 048
     Dates: start: 20100723
  10. DEXAMETHASONE [Concomitant]
     Dosage: UNK
  11. CIMETIDINE [Concomitant]
     Dosage: UNK
  12. ZITHROMAX [Suspect]
     Indication: INFLUENZA LIKE ILLNESS
     Dosage: UNK
     Dates: start: 20101001, end: 20101005
  13. FEXOFENADINE [Concomitant]
     Dosage: UNK
  14. TUSNEL [Suspect]
     Indication: INFLUENZA LIKE ILLNESS
     Dosage: UNK
     Dates: start: 20101001, end: 20101006
  15. BENADRYL [Concomitant]
     Indication: INFLUENZA LIKE ILLNESS
  16. ZITHROMAX [Suspect]
     Indication: COUGH
  17. TRUVADA [Suspect]
     Indication: HIV INFECTION
     Dosage: 200 MG, 1X/DAY
     Route: 048
     Dates: start: 20100723, end: 20101002
  18. BENADRYL [Concomitant]
     Indication: COUGH

REACTIONS (1)
  - VASCULITIS [None]
